FAERS Safety Report 16767878 (Version 1)
Quarter: 2019Q3

REPORT INFORMATION
  Report Type: Spontaneous
  Country: US (occurrence: US)
  Receive Date: 20190903
  Receipt Date: 20190903
  Transmission Date: 20191005
  Serious: Yes (Hospitalization, Disabling, Other)
  Sender: FDA-Public Use
  Company Number: US-SA-2019SA245940

PATIENT
  Age: 91 Year
  Sex: Male

DRUGS (1)
  1. LIBTAYO [Suspect]
     Active Substance: CEMIPLIMAB-RWLC
     Indication: SQUAMOUS CELL CARCINOMA
     Dosage: UNK UNK, Q3W
     Route: 042
     Dates: start: 20190730, end: 20190730

REACTIONS (4)
  - Intentional dose omission [Unknown]
  - Fall [Unknown]
  - Gait disturbance [Unknown]
  - Spinal fracture [Unknown]

NARRATIVE: CASE EVENT DATE: 20190816
